FAERS Safety Report 24198457 (Version 2)
Quarter: 2025Q3

REPORT INFORMATION
  Report Type: Spontaneous
  Country: EU (occurrence: EU)
  Receive Date: 20240812
  Receipt Date: 20250717
  Transmission Date: 20251021
  Serious: Yes (Other)
  Sender: TAKEDA
  Company Number: EU-INCYTE CORPORATION-2024IN008236

PATIENT
  Age: 56 Year
  Sex: Male

DRUGS (1)
  1. ICLUSIG [Suspect]
     Active Substance: PONATINIB HYDROCHLORIDE
     Indication: Chronic myeloid leukaemia
     Dosage: 45 MILLIGRAM, QD
     Dates: start: 20200201, end: 20240701

REACTIONS (4)
  - Chronic myeloid leukaemia [Recovered/Resolved]
  - Treatment noncompliance [Recovered/Resolved]
  - Disease progression [Recovered/Resolved]
  - Drug ineffective [Unknown]

NARRATIVE: CASE EVENT DATE: 20240701
